FAERS Safety Report 4684864-2 (Version None)
Quarter: 2005Q2

REPORT INFORMATION
  Report Type: 
  Country: None (occurrence: None)
  Receive Date: 20050525
  Receipt Date: 20050301
  Transmission Date: 20051028
  Serious: No
  Sender: FDA-Public Use
  Company Number: SU-2005-003027

PATIENT
  Age: 68 Year
  Sex: Female

DRUGS (5)
  1. BENICAR [Suspect]
     Indication: HYPERTENSION
     Dosage: 20 MG QD PO
     Route: 048
     Dates: start: 20030409, end: 20050127
  2. XALATAN [Concomitant]
  3. PRILOSEC [Concomitant]
  4. CLARINEX  /USA/ [Concomitant]
  5. LIPITOR [Concomitant]

REACTIONS (1)
  - ALOPECIA [None]
